FAERS Safety Report 7705239-5 (Version None)
Quarter: 2011Q3

REPORT INFORMATION
  Report Type: 
  Country: None (occurrence: None)
  Receive Date: 20110818
  Receipt Date: 20110802
  Transmission Date: 20111222
  Serious: Yes (Death, Life-Threatening, Hospitalization, Other)
  Sender: FDA-Public Use
  Company Number: 2011MA010841

PATIENT
  Age: 59 Year
  Sex: Male

DRUGS (8)
  1. ATENOLOL [Concomitant]
  2. ISOSORBIDE MONONITRATE [Concomitant]
  3. ALPRAZOLAM [Concomitant]
  4. BENDROFLUMETHIAZIDE [Concomitant]
  5. AMITRIPTYLINE HCL [Concomitant]
  6. MIRTAZAPINE [Suspect]
     Indication: ANXIETY DISORDER
     Dosage: 60 MG; QD
  7. MIRTAZAPINE [Suspect]
     Indication: DEPRESSION
     Dosage: 60 MG; QD
  8. MIRTAZAPINE [Suspect]
     Indication: HAEMOCHROMATOSIS
     Dosage: 60 MG; QD

REACTIONS (8)
  - SEROTONIN SYNDROME [None]
  - CEREBELLAR ATROPHY [None]
  - MULTI-ORGAN FAILURE [None]
  - TOXICITY TO VARIOUS AGENTS [None]
  - METABOLIC ACIDOSIS [None]
  - INTESTINAL DILATATION [None]
  - DISSEMINATED INTRAVASCULAR COAGULATION [None]
  - DEPRESSED LEVEL OF CONSCIOUSNESS [None]
